FAERS Safety Report 24587738 (Version 1)
Quarter: 2024Q4

REPORT INFORMATION
  Report Type: Spontaneous
  Country: US (occurrence: US)
  Receive Date: 20241107
  Receipt Date: 20241107
  Transmission Date: 20250114
  Serious: No
  Sender: ELI LILLY AND COMPANY
  Company Number: US-ELI_LILLY_AND_COMPANY-US202411002118

PATIENT
  Age: 94 Year
  Sex: Female

DRUGS (8)
  1. HUMALOG [Suspect]
     Active Substance: INSULIN LISPRO
     Indication: Product used for unknown indication
     Dosage: 4 U, BID (MORNING AND LUNCH)
     Route: 065
  2. HUMALOG [Suspect]
     Active Substance: INSULIN LISPRO
     Indication: Product used for unknown indication
     Dosage: 4 U, BID (MORNING AND LUNCH)
     Route: 065
  3. HUMALOG [Suspect]
     Active Substance: INSULIN LISPRO
     Dosage: 7 U, DAILY (NIGHT)
     Route: 065
  4. HUMALOG [Suspect]
     Active Substance: INSULIN LISPRO
     Dosage: 7 U, DAILY (NIGHT)
     Route: 065
  5. HUMALOG [Suspect]
     Active Substance: INSULIN LISPRO
     Dosage: 4 U, BID (MORNING AND LUNCH)
     Route: 065
  6. HUMALOG [Suspect]
     Active Substance: INSULIN LISPRO
     Dosage: 4 U, BID (MORNING AND LUNCH)
     Route: 065
  7. HUMALOG [Suspect]
     Active Substance: INSULIN LISPRO
     Dosage: 7 U, DAILY (NIGHT)
     Route: 065
  8. HUMALOG [Suspect]
     Active Substance: INSULIN LISPRO
     Dosage: 7 U, DAILY (NIGHT)
     Route: 065

REACTIONS (4)
  - Blood glucose increased [Unknown]
  - Hypoacusis [Unknown]
  - Rhinorrhoea [Unknown]
  - Visual impairment [Unknown]

NARRATIVE: CASE EVENT DATE: 20241104
